FAERS Safety Report 22354210 (Version 3)
Quarter: 2024Q2

REPORT INFORMATION
  Report Type: Spontaneous
  Country: FR (occurrence: FR)
  Receive Date: 20230523
  Receipt Date: 20240515
  Transmission Date: 20240716
  Serious: Yes (Hospitalization, Other)
  Sender: FDA-Public Use
  Company Number: FR-RECORDATI-2023002837

PATIENT

DRUGS (4)
  1. OSILODROSTAT [Suspect]
     Active Substance: OSILODROSTAT
     Indication: Cushing^s syndrome
     Dosage: 10 MG/DAY
  2. DEXAMETHASONE [Suspect]
     Active Substance: DEXAMETHASONE
     Indication: Cushing^s syndrome
     Dosage: 0.5 MILLIGRAM
  3. DEXAMETHASONE [Suspect]
     Active Substance: DEXAMETHASONE
     Dosage: 1 MILLIGRAM
  4. CABERGOLINE [Concomitant]
     Active Substance: CABERGOLINE
     Indication: Cushing^s syndrome
     Dosage: 1.5 MILLIGRAM, QW

REACTIONS (6)
  - COVID-19 [Not Recovered/Not Resolved]
  - Mineralocorticoid deficiency [Not Recovered/Not Resolved]
  - Rash [Unknown]
  - Asthenia [Not Recovered/Not Resolved]
  - Adrenal insufficiency [Recovered/Resolved]
  - Therapeutic product effect prolonged [Recovered/Resolved]
